FAERS Safety Report 18639591 (Version 3)
Quarter: 2021Q1

REPORT INFORMATION
  Report Type: Spontaneous
  Country: US (occurrence: US)
  Receive Date: 20201220
  Receipt Date: 20210220
  Transmission Date: 20210419
  Serious: No
  Sender: FDA-Public Use
  Company Number: US-ASTRAZENECA-2020SF60452

PATIENT
  Age: 24948 Day
  Sex: Female
  Weight: 72.6 kg

DRUGS (1)
  1. BYDUREON [Suspect]
     Active Substance: EXENATIDE
     Indication: DIABETES MELLITUS
     Route: 058
     Dates: end: 20201222

REACTIONS (3)
  - Injection site mass [Not Recovered/Not Resolved]
  - Injection site pain [Unknown]
  - Blister [Unknown]

NARRATIVE: CASE EVENT DATE: 20201201
